FAERS Safety Report 26027932 (Version 1)
Quarter: 2025Q4

REPORT INFORMATION
  Report Type: Report from Study
  Country: US (occurrence: US)
  Receive Date: 20251111
  Receipt Date: 20251111
  Transmission Date: 20260117
  Serious: No
  Sender: ACADIA PHARMACEUTICALS
  Company Number: US-ACADIA PHARMACEUTICALS INC.-ACA-2025-PIM-011955

PATIENT
  Age: 82 Year
  Sex: Female

DRUGS (19)
  1. NUPLAZID [Suspect]
     Active Substance: PIMAVANSERIN TARTRATE
     Indication: Parkinson^s disease
     Dosage: 34 MILLIGRAM, QD
     Route: 048
     Dates: start: 20250724
  2. NUPLAZID [Suspect]
     Active Substance: PIMAVANSERIN TARTRATE
     Indication: Hallucination
  3. ZOLOFT [Concomitant]
     Active Substance: SERTRALINE HYDROCHLORIDE
  4. VITAMIN D3 [Concomitant]
     Active Substance: CHOLECALCIFEROL
  5. VITAMINS [Concomitant]
     Active Substance: VITAMINS
  6. VITAMIN B12 [Concomitant]
     Active Substance: CYANOCOBALAMIN
  7. OMEPRAZOLE [Concomitant]
     Active Substance: OMEPRAZOLE
  8. KLONOPIN [Concomitant]
     Active Substance: CLONAZEPAM
  9. ASPIRIN [Concomitant]
     Active Substance: ASPIRIN
  10. IBUPROFEN [Concomitant]
     Active Substance: IBUPROFEN
  11. DICLOFENAC [Concomitant]
     Active Substance: DICLOFENAC
  12. SODIUM CHLORIDE [Concomitant]
     Active Substance: SODIUM CHLORIDE
  13. CARBIDOPA\LEVODOPA [Concomitant]
     Active Substance: CARBIDOPA\LEVODOPA
  14. FOSAMAX [Concomitant]
     Active Substance: ALENDRONATE SODIUM
  15. SENNA [Concomitant]
     Active Substance: SENNOSIDES
  16. TROSPIUM [Concomitant]
     Active Substance: TROSPIUM
  17. METOPROLOL [Concomitant]
     Active Substance: METOPROLOL
     Dosage: ER
  18. FLECAINIDE [Concomitant]
     Active Substance: FLECAINIDE
  19. RISPERIDONE [Concomitant]
     Active Substance: RISPERIDONE

REACTIONS (1)
  - Urinary tract infection [Not Recovered/Not Resolved]

NARRATIVE: CASE EVENT DATE: 20251020
